FAERS Safety Report 10361946 (Version 2)
Quarter: 2014Q4

REPORT INFORMATION
  Report Type: Spontaneous
  Country: US (occurrence: US)
  Receive Date: 20140805
  Receipt Date: 20141002
  Transmission Date: 20150528
  Serious: No
  Sender: FDA-Public Use
  Company Number: US-009507513-1407USA014065

PATIENT
  Age: 56 Year
  Sex: Male
  Weight: 97.52 kg

DRUGS (4)
  1. RAGWITEK [Concomitant]
     Active Substance: AMBROSIA ARTEMISIIFOLIA POLLEN
     Dosage: 600 MG, UNK
     Route: 048
  2. REBETOL [Suspect]
     Active Substance: RIBAVIRIN
     Indication: HEPATITIS
     Dosage: UNK
     Route: 048
  3. SOVALDI [Suspect]
     Active Substance: SOFOSBUVIR
     Indication: HEPATITIS
     Dosage: TOTAL DAILY DOSE: 400 MG
     Route: 048
     Dates: start: 20140720
  4. PEGINTRON [Suspect]
     Active Substance: PEGINTERFERON ALFA-2B
     Indication: HEPATITIS C
     Dosage: TOTAL DAILY DOSE: 120 MCG, PREVIOUSLY REPORTED AS (96 MCG/ ONCE WEEKLY,^ BASED ON THE PATIENT WEIGHT
     Route: 058
     Dates: start: 20140712

REACTIONS (4)
  - Pain in extremity [Unknown]
  - Nausea [Unknown]
  - Drug administration error [Unknown]
  - Dyspnoea [Unknown]

NARRATIVE: CASE EVENT DATE: 20140708
